FAERS Safety Report 5405625-2 (Version None)
Quarter: 2007Q3

REPORT INFORMATION
  Report Type: 
  Country: None (occurrence: None)
  Receive Date: 20070801
  Receipt Date: 20070723
  Transmission Date: 20080115
  Serious: Yes (Life-Threatening, Other)
  Sender: FDA-Public Use
  Company Number: 231090K07USA

PATIENT
  Age: 41 Year
  Sex: Female
  Weight: 49.8957 kg

DRUGS (8)
  1. REBIF [Suspect]
     Indication: MULTIPLE SCLEROSIS
     Dosage: NOT REPORTED, NOT REPORTED, SUBCUTANEOUS
     Route: 058
     Dates: start: 20061114, end: 20070123
  2. TEGRETOL-XR [Concomitant]
  3. CELEXA [Concomitant]
  4. NEURONTIN [Concomitant]
  5. ZANTAC 150 [Concomitant]
  6. DITROPAN (OXYBUTYNIN /00538901/) [Concomitant]
  7. DEPAKOTE [Concomitant]
  8. ULTRAM [Concomitant]

REACTIONS (4)
  - DEPRESSION [None]
  - INTENTIONAL SELF-INJURY [None]
  - OVERDOSE [None]
  - SUICIDE ATTEMPT [None]
